FAERS Safety Report 9117172 (Version 1)
Quarter: 2013Q1

REPORT INFORMATION
  Report Type: Spontaneous
  Country: GB (occurrence: GB)
  Receive Date: 20130225
  Receipt Date: 20130225
  Transmission Date: 20140127
  Serious: Yes (Death, Other)
  Sender: FDA-Public Use
  Company Number: GB-JNJFOC-20130212732

PATIENT
  Sex: 0

DRUGS (6)
  1. DOXORUBICIN [Suspect]
     Indication: NEOPLASM MALIGNANT
     Route: 042
  2. VINCRISTINE [Suspect]
     Indication: NEOPLASM MALIGNANT
     Route: 065
  3. CYCLOPHOSPHAMIDE [Suspect]
     Indication: NEOPLASM MALIGNANT
     Route: 065
  4. CARBOPLATIN [Suspect]
     Indication: NEOPLASM MALIGNANT
     Route: 065
  5. ETOPOSIDE [Suspect]
     Indication: NEOPLASM MALIGNANT
     Route: 065
  6. RADIOTHERAPY [Suspect]
     Indication: NEOPLASM MALIGNANT
     Dosage: LESS THAN OR EQUAL TO 45.0 GY FOR 13 PATIENTS AND GREATER THAN 45.0 GY IN REST
     Route: 065

REACTIONS (3)
  - Malignant neoplasm progression [Unknown]
  - Death [Fatal]
  - Off label use [Unknown]
